FAERS Safety Report 7675259-8 (Version None)
Quarter: 2011Q3

REPORT INFORMATION
  Report Type: 
  Country: None (occurrence: None)
  Receive Date: 20110810
  Receipt Date: 20110803
  Transmission Date: 20111222
  Serious: Yes (Hospitalization)
  Sender: FDA-Public Use
  Company Number: DE-JNJFOC-049-0184-990001

PATIENT
  Sex: Male
  Weight: 21 kg

DRUGS (10)
  1. SPASMO-MUCOSOLVAN [Suspect]
     Indication: SPUTUM ABNORMAL
     Dosage: FREQUENCY TEXT: DAILY DAILY DOSE QTY: 20 MILLILITERS
     Route: 048
     Dates: start: 19981025
  2. MUCOSOLVAN [Suspect]
     Indication: SPUTUM ABNORMAL
     Dosage: FREQUENCY TEXT: DAILY DAILY DOSE QTY: 7.5 MILLILITERS
     Route: 048
     Dates: start: 19981018, end: 19981024
  3. BENADRYL N [Suspect]
     Indication: INCREASED BRONCHIAL SECRETION
     Dosage: FREQUENCY TEXT: SEVERAL TIMES DAILY
     Route: 048
     Dates: start: 19981019
  4. BENADRYL N [Suspect]
     Indication: COUGH
     Dosage: FREQUENCY TEXT: SEVERAL TIMES DAILY
     Route: 048
     Dates: start: 19981019
  5. ARCASIN [Suspect]
     Indication: PYREXIA
     Dosage: FREQUENCY TEXT: DAILY DAILY DOSE TEXT: 3 TABLESPOONFULS
     Route: 048
     Dates: start: 19981018, end: 19981021
  6. PERENTEROL [Concomitant]
     Dates: start: 19981026
  7. DYNEXAN A GEL [Concomitant]
     Dates: start: 19981026
  8. ACC 100 [Suspect]
     Indication: SPUTUM ABNORMAL
     Dosage: FREQUENCY TEXT: DAILY DAILY DOSE TEXT: ONE
     Route: 048
     Dates: start: 19981021, end: 19981024
  9. CEFPODOXIME PROXETIL [Suspect]
     Indication: PNEUMONIA
     Dosage: FREQUENCY TEXT: DAILY DAILY DOSE QTY: 120 MG
     Route: 048
     Dates: start: 19981021, end: 19981025
  10. AUGMENTIN '125' [Suspect]
     Indication: PNEUMONIA
     Dosage: FREQUENCY TEXT: DAILY DAILY DOSE QTY: 24 MILLILITERS
     Route: 048
     Dates: start: 19981025, end: 19981027

REACTIONS (2)
  - STEVENS-JOHNSON SYNDROME [None]
  - PNEUMONIA MYCOPLASMAL [None]
